FAERS Safety Report 20006183 (Version 1)
Quarter: 2021Q4

REPORT INFORMATION
  Report Type: Spontaneous
  Country: GB (occurrence: GB)
  Receive Date: 20211027
  Receipt Date: 20211027
  Transmission Date: 20220303
  Serious: Yes (Other)
  Sender: FDA-Public Use
  Company Number: GB-ASCEND THERAPEUTICS US, LLC-2121088

PATIENT
  Age: 47 Year
  Sex: Female
  Weight: 99.78 kg

DRUGS (9)
  1. ESTROGEL [Suspect]
     Active Substance: ESTRADIOL
     Indication: Product used for unknown indication
     Route: 065
     Dates: start: 20211007
  2. ESTROGEL [Suspect]
     Active Substance: ESTRADIOL
  3. UTROGESTAN [Suspect]
     Active Substance: PROGESTERONE
     Route: 048
     Dates: start: 20211007
  4. ESTRADIOL [Suspect]
     Active Substance: ESTRADIOL
     Route: 065
     Dates: start: 20211007
  5. COD LIVER OIL(COD-LIVER OIL) [Concomitant]
     Route: 065
  6. EVENING PRIMROSE OIL(OENOTHERA BIENNIS) [Concomitant]
     Route: 065
  7. FLUOXETIN(FLUOXETINE HYDROCHLORIDE) [Concomitant]
     Route: 065
  8. NAPROXEN [Concomitant]
     Active Substance: NAPROXEN
     Route: 065
  9. VITAMIN C(ASCORBIC ACID) [Concomitant]
     Route: 065

REACTIONS (4)
  - Feeling hot [Recovering/Resolving]
  - Malaise [Recovering/Resolving]
  - Dizziness [Recovering/Resolving]
  - Dizziness [Recovering/Resolving]
